FAERS Safety Report 10094647 (Version 2)
Quarter: 2014Q2

REPORT INFORMATION
  Report Type: Report from Study
  Country: US (occurrence: US)
  Receive Date: 20140422
  Receipt Date: 20140422
  Transmission Date: 20141212
  Serious: Yes (Other)
  Sender: FDA-Public Use
  Company Number: US-ROCHE-1359931

PATIENT
  Sex: 0

DRUGS (2)
  1. VEMURAFENIB [Suspect]
     Indication: MALIGNANT MELANOMA
     Route: 065
     Dates: start: 20140115
  2. BEVACIZUMAB [Suspect]
     Indication: MALIGNANT MELANOMA
     Route: 065
     Dates: start: 20140115

REACTIONS (1)
  - Rash maculo-papular [Unknown]
